FAERS Safety Report 19571014 (Version 1)
Quarter: 2021Q3

REPORT INFORMATION
  Report Type: Report from Study
  Country: US (occurrence: US)
  Receive Date: 20210716
  Receipt Date: 20210716
  Transmission Date: 20211014
  Serious: Yes (Other)
  Sender: FDA-Public Use
  Company Number: US-ASTELLAS-2020US022365

PATIENT
  Age: 65 Year
  Sex: Male

DRUGS (1)
  1. ENZALUTAMIDE [Suspect]
     Active Substance: ENZALUTAMIDE
     Indication: PROSTATE CANCER
     Route: 048
     Dates: start: 202005

REACTIONS (13)
  - Arthralgia [Unknown]
  - Restless legs syndrome [Unknown]
  - Back pain [Unknown]
  - Hypotonia [Unknown]
  - Hot flush [Unknown]
  - Dysphonia [Unknown]
  - Insomnia [Unknown]
  - Depressed level of consciousness [Unknown]
  - Weight increased [Unknown]
  - Anxiety [Unknown]
  - Dyspnoea [Unknown]
  - Tremor [Unknown]
  - Condition aggravated [Unknown]

NARRATIVE: CASE EVENT DATE: 202102
